FAERS Safety Report 15370341 (Version 1)
Quarter: 2018Q4

REPORT INFORMATION
  Report Type: Spontaneous
  Country: US (occurrence: US)
  Receive Date: 20180911
  Receipt Date: 20180911
  Transmission Date: 20190204
  Serious: No
  Sender: FDA-Public Use
  Company Number: US-009507513-1808USA012822

PATIENT
  Age: 13 Year
  Sex: Female
  Weight: 45 kg

DRUGS (3)
  1. ASCORBIC ACID (+) ERGOCALCIFEROL (+) FOLIC ACID (+) VITAMIN A (+) VTAM [Concomitant]
  2. BETAMETHASONE DIPROPIONATE (+) SALICYLIC ACID [Suspect]
     Active Substance: BETAMETHASONE DIPROPIONATE\SALICYLIC ACID
     Indication: PRODUCT USE IN UNAPPROVED INDICATION
     Dosage: UNK
     Route: 061
     Dates: start: 20180613, end: 20180615
  3. BETAMETHASONE DIPROPIONATE (+) SALICYLIC ACID [Suspect]
     Active Substance: BETAMETHASONE DIPROPIONATE\SALICYLIC ACID
     Dosage: UNK
     Dates: start: 20180613, end: 20180615

REACTIONS (1)
  - Device ineffective [Not Recovered/Not Resolved]

NARRATIVE: CASE EVENT DATE: 20180613
